FAERS Safety Report 9920118 (Version 1)
Quarter: 2014Q1

REPORT INFORMATION
  Report Type: Spontaneous
  Country: JP (occurrence: JP)
  Receive Date: 20140224
  Receipt Date: 20140224
  Transmission Date: 20141002
  Serious: Yes (Other)
  Sender: FDA-Public Use
  Company Number: JP-PFIZER INC-2014052980

PATIENT
  Age: 47 Year
  Sex: Female

DRUGS (1)
  1. CELECOX [Suspect]
     Dosage: UNK
     Route: 048

REACTIONS (1)
  - Hepatitis acute [Unknown]
